FAERS Safety Report 5151241-X (Version None)
Quarter: 2006Q4

REPORT INFORMATION
  Report Type: 
  Country: None (occurrence: None)
  Receive Date: 20061113
  Receipt Date: 20061113
  Transmission Date: 20070319
  Serious: No
  Sender: FDA-Public Use
  Company Number: None

PATIENT
  Age: 43 Year
  Sex: Male
  Weight: 62.0521 kg

DRUGS (6)
  1. TRUVADA [Suspect]
     Indication: DRUG THERAPY
     Dosage: 1 TABLET  DAILY  PO
     Route: 048
     Dates: start: 20050401
  2. TRUVADA [Suspect]
     Indication: HIV INFECTION
     Dosage: 1 TABLET  DAILY  PO
     Route: 048
     Dates: start: 20050401
  3. REYATAZ [Concomitant]
  4. NORVIR [Concomitant]
  5. OXYCONTIN [Concomitant]
  6. LYRICA [Concomitant]

REACTIONS (3)
  - BLOOD CREATININE INCREASED [None]
  - GLYCOSURIA [None]
  - PROTEINURIA [None]
